FAERS Safety Report 21089285 (Version 2)
Quarter: 2023Q1

REPORT INFORMATION
  Report Type: Report from Study
  Country: US (occurrence: US)
  Receive Date: 20220715
  Receipt Date: 20230121
  Transmission Date: 20230417
  Serious: Yes (Hospitalization, Other)
  Sender: FDA-Public Use
  Company Number: US-KOREA IPSEN Pharma-2022-20061

PATIENT
  Age: 60 Year
  Sex: Female

DRUGS (2)
  1. SOMATULINE DEPOT [Suspect]
     Active Substance: LANREOTIDE ACETATE
     Indication: Carcinoid tumour of the small bowel
     Route: 058
     Dates: start: 201911
  2. SOMATULINE DEPOT [Suspect]
     Active Substance: LANREOTIDE ACETATE
     Indication: Carcinoid tumour of the liver
     Dosage: 90MG/0.3MG, EVERY 28 DAYS
     Route: 058
     Dates: start: 201911

REACTIONS (9)
  - COVID-19 [Recovered/Resolved]
  - Diabetes mellitus [Recovered/Resolved]
  - Eczema [Recovered/Resolved]
  - Hypoaesthesia [Recovered/Resolved]
  - Hypertension [Recovered/Resolved]
  - Epistaxis [Recovered/Resolved]
  - Injection site mass [Recovered/Resolved]
  - Product storage error [Recovered/Resolved]
  - Gastric disorder [Recovered/Resolved]

NARRATIVE: CASE EVENT DATE: 20210101
